FAERS Safety Report 7549392-5 (Version None)
Quarter: 2011Q2

REPORT INFORMATION
  Report Type: 
  Country: None (occurrence: None)
  Receive Date: 20110615
  Receipt Date: 20040623
  Transmission Date: 20111010
  Serious: Yes (Hospitalization, Other)
  Sender: FDA-Public Use
  Company Number: PHFR2003GB04590

PATIENT
  Sex: Male

DRUGS (1)
  1. CLOZAPINE [Suspect]
     Dosage: 300 MG/DAY
     Route: 047
     Dates: start: 20030718, end: 20040623

REACTIONS (13)
  - STAPHYLOCOCCAL INFECTION [None]
  - HAEMATEMESIS [None]
  - VOMITING [None]
  - WHEEZING [None]
  - PAIN [None]
  - POST PROCEDURAL COMPLICATION [None]
  - DYSPNOEA [None]
  - IMMOBILE [None]
  - CONDITION AGGRAVATED [None]
  - RESPIRATORY DISORDER [None]
  - BRONCHITIS [None]
  - APPENDICITIS PERFORATED [None]
  - WHITE BLOOD CELL COUNT INCREASED [None]
